FAERS Safety Report 5638019-5 (Version None)
Quarter: 2008Q1

REPORT INFORMATION
  Report Type: 
  Country: None (occurrence: None)
  Receive Date: 20080226
  Receipt Date: 20080214
  Transmission Date: 20080703
  Serious: Yes (Other)
  Sender: FDA-Public Use
  Company Number: US-JNJFOC-20080204026

PATIENT
  Age: 84 Year
  Sex: Female
  Weight: 68.04 kg

DRUGS (2)
  1. EXTRA STRENGTH TYLENOL [Suspect]
  2. EXTRA STRENGTH TYLENOL [Suspect]
     Indication: PAIN

REACTIONS (3)
  - DIZZINESS [None]
  - HALLUCINATION, VISUAL [None]
  - VISION BLURRED [None]
